FAERS Safety Report 9353367 (Version 1)
Quarter: 2013Q2

REPORT INFORMATION
  Report Type: Spontaneous
  Country: US (occurrence: US)
  Receive Date: 20130618
  Receipt Date: 20130618
  Transmission Date: 20140414
  Serious: No
  Sender: FDA-Public Use
  Company Number: US-BAYER-2013-074782

PATIENT
  Age: 68 Year
  Sex: Male
  Weight: 125 kg

DRUGS (5)
  1. ALEVE CAPLET [Suspect]
     Indication: BACK PAIN
     Dosage: 1 DF, TID
     Route: 048
     Dates: start: 201306
  2. BAYER ASPIRIN REGIMEN ADULT LOW STRENGTH [Concomitant]
  3. OMEGA 3 [Concomitant]
  4. VITAMIN D [Concomitant]
  5. VITAMIN C [Concomitant]

REACTIONS (1)
  - Drug ineffective [None]
